FAERS Safety Report 19974179 (Version 2)
Quarter: 2022Q1

REPORT INFORMATION
  Report Type: Spontaneous
  Country: US (occurrence: None)
  Receive Date: 20211020
  Receipt Date: 20220318
  Transmission Date: 20220424
  Serious: Yes (Other)
  Sender: FDA-Public Use
  Company Number: 2021A775736

PATIENT
  Age: 1049 Month
  Sex: Male
  Weight: 86.2 kg

DRUGS (25)
  1. PRILOSEC [Suspect]
     Active Substance: OMEPRAZOLE MAGNESIUM
     Indication: Gastrooesophageal reflux disease
     Route: 048
     Dates: start: 2012
  2. PRILOSEC [Suspect]
     Active Substance: OMEPRAZOLE MAGNESIUM
     Indication: Gastrooesophageal reflux disease
     Dosage: GENERIC
     Route: 048
     Dates: start: 20150707
  3. PRILOSEC OTC [Suspect]
     Active Substance: OMEPRAZOLE MAGNESIUM
     Indication: Gastrooesophageal reflux disease
     Route: 048
     Dates: start: 2012
  4. CELECOXIB [Concomitant]
     Active Substance: CELECOXIB
     Indication: Pain
  5. CHLORTHALIDONE [Concomitant]
     Active Substance: CHLORTHALIDONE
     Indication: Blood pressure abnormal
  6. EDARBI [Concomitant]
     Active Substance: AZILSARTAN KAMEDOXOMIL
     Indication: Blood pressure abnormal
  7. SIMVASTATIN [Concomitant]
     Active Substance: SIMVASTATIN
     Indication: Blood cholesterol abnormal
  8. ALLOPURINOL [Concomitant]
     Active Substance: ALLOPURINOL
     Indication: Acid base balance abnormal
  9. HYDRALAZINE [Concomitant]
     Active Substance: HYDRALAZINE HYDROCHLORIDE
     Indication: Blood pressure abnormal
  10. LOSARTAN [Concomitant]
     Active Substance: LOSARTAN
     Indication: Blood pressure abnormal
  11. METHYLPREDNISOLONE [Concomitant]
     Active Substance: METHYLPREDNISOLONE
  12. JANUMET [Concomitant]
     Active Substance: METFORMIN HYDROCHLORIDE\SITAGLIPTIN PHOSPHATE
     Indication: Diabetes mellitus
  13. CEFPODOXIME PROXETIL [Concomitant]
     Active Substance: CEFPODOXIME PROXETIL
     Indication: Infection
  14. MIRABEGRON [Concomitant]
     Active Substance: MIRABEGRON
     Indication: Bladder dysfunction
  15. BENZONATATE [Concomitant]
     Active Substance: BENZONATATE
  16. ASPIRIN [Concomitant]
     Active Substance: ASPIRIN
     Indication: Routine health maintenance
  17. MULTI VITAMINS-MINERALS [Concomitant]
     Indication: Routine health maintenance
  18. METOPROLOL [Concomitant]
     Active Substance: METOPROLOL
  19. FERROUS SULFATE [Concomitant]
     Active Substance: FERROUS SULFATE
  20. AMLODIPINE [Concomitant]
     Active Substance: AMLODIPINE BESYLATE
  21. BUPROPION [Concomitant]
     Active Substance: BUPROPION
  22. ERGOCALCIFEROL [Concomitant]
     Active Substance: ERGOCALCIFEROL
  23. GLYBURIDE [Concomitant]
     Active Substance: GLYBURIDE
  24. CLOTRIMAZOLE [Concomitant]
     Active Substance: CLOTRIMAZOLE
  25. COLCHICINE [Concomitant]
     Active Substance: COLCHICINE

REACTIONS (1)
  - Chronic kidney disease [Not Recovered/Not Resolved]

NARRATIVE: CASE EVENT DATE: 20181201
